FAERS Safety Report 11801492 (Version 2)
Quarter: 2016Q1

REPORT INFORMATION
  Report Type: Spontaneous
  Country: FR (occurrence: FR)
  Receive Date: 20151204
  Receipt Date: 20160104
  Transmission Date: 20160525
  Serious: Yes (Hospitalization, Other)
  Sender: FDA-Public Use
  Company Number: FR-SA-2015SA197771

PATIENT
  Age: 69 Year
  Sex: Male

DRUGS (2)
  1. ZALTRAP [Suspect]
     Active Substance: ZIV-AFLIBERCEPT
     Indication: COLORECTAL CANCER METASTATIC
     Route: 041
     Dates: start: 20150922, end: 20150922
  2. ZALTRAP [Suspect]
     Active Substance: ZIV-AFLIBERCEPT
     Indication: COLORECTAL CANCER METASTATIC
     Route: 041
     Dates: start: 20151006, end: 20151006

REACTIONS (2)
  - Myocardial infarction [Recovering/Resolving]
  - Myocardial necrosis [Recovering/Resolving]

NARRATIVE: CASE EVENT DATE: 20151021
